FAERS Safety Report 15516205 (Version 1)
Quarter: 2018Q4

REPORT INFORMATION
  Report Type: Report from Study
  Country: JP (occurrence: JP)
  Receive Date: 20181017
  Receipt Date: 20181017
  Transmission Date: 20190205
  Serious: No
  Sender: FDA-Public Use
  Company Number: JP-IPSEN BIOPHARMACEUTICALS, INC.-2018-15900

PATIENT
  Age: 35 Year
  Sex: Male

DRUGS (6)
  1. CABASER [Suspect]
     Active Substance: CABERGOLINE
     Route: 048
     Dates: start: 20161215, end: 20170315
  2. CABASER [Suspect]
     Active Substance: CABERGOLINE
     Route: 048
     Dates: start: 20170316
  3. CABASER [Suspect]
     Active Substance: CABERGOLINE
     Indication: ACROMEGALY
     Dates: start: 20160512, end: 20160712
  4. CABASER [Suspect]
     Active Substance: CABERGOLINE
     Route: 048
     Dates: start: 20160713, end: 20160809
  5. CABASER [Suspect]
     Active Substance: CABERGOLINE
     Route: 048
     Dates: start: 20160810, end: 20161214
  6. SOMATULINE 90MG [Suspect]
     Active Substance: LANREOTIDE ACETATE
     Indication: ACROMEGALY
     Dosage: 1 IN 4-8 WEEK
     Route: 058
     Dates: start: 20150616

REACTIONS (2)
  - Prescribed underdose [Unknown]
  - Gamma-glutamyltransferase increased [Unknown]

NARRATIVE: CASE EVENT DATE: 20180710
